FAERS Safety Report 7084281-4 (Version None)
Quarter: 2010Q4

REPORT INFORMATION
  Report Type: 
  Country: None (occurrence: None)
  Receive Date: 20101104
  Receipt Date: 20101028
  Transmission Date: 20110411
  Serious: Yes (Other)
  Sender: FDA-Public Use
  Company Number: US-PFIZER INC-2010137692

PATIENT
  Sex: Female
  Weight: 68.027 kg

DRUGS (3)
  1. LIPITOR [Suspect]
     Indication: BLOOD CHOLESTEROL INCREASED
     Dosage: 40 MG, DAILY
     Route: 048
     Dates: start: 20050101
  2. SYNTHROID [Concomitant]
     Dosage: UNK
  3. COZAAR [Concomitant]
     Dosage: UNK

REACTIONS (3)
  - NASOPHARYNGITIS [None]
  - NAUSEA [None]
  - PNEUMONIA PRIMARY ATYPICAL [None]
